FAERS Safety Report 5916873-7 (Version None)
Quarter: 2008Q4

REPORT INFORMATION
  Report Type: 
  Country: None (occurrence: None)
  Receive Date: 20081013
  Receipt Date: 20081001
  Transmission Date: 20090506
  Serious: Yes (Death)
  Sender: FDA-Public Use
  Company Number: GB-ROCHE-582285

PATIENT
  Sex: Male
  Weight: 80.8 kg

DRUGS (6)
  1. XELODA [Suspect]
     Indication: RECTAL CANCER
     Dosage: THIS WAS PRESCRIBED FOR 35 DAYS
     Route: 048
     Dates: start: 20080714, end: 20080811
  2. METOCLOPRAMIDE [Concomitant]
     Indication: NAUSEA
     Dosage: PRN
     Route: 048
     Dates: start: 20080714
  3. LOPERAMIDE HCL [Concomitant]
     Indication: DIARRHOEA
     Dosage: PRN
     Route: 048
     Dates: start: 20080714
  4. LISINOPRIL [Concomitant]
     Indication: HYPERTENSION
     Route: 048
  5. BENDROFLUMETHIAZIDE [Concomitant]
     Indication: HYPERTENSION
     Route: 048
  6. CHLORAMPHENICOL [Concomitant]
     Indication: CONJUNCTIVITIS
     Route: 047
     Dates: start: 20080801

REACTIONS (7)
  - CONJUNCTIVITIS [None]
  - DIARRHOEA [None]
  - HYPOTENSION [None]
  - NEUTROPENIA [None]
  - RASH MACULO-PAPULAR [None]
  - RENAL FAILURE ACUTE [None]
  - SKIN INFECTION [None]
